FAERS Safety Report 25347724 (Version 2)
Quarter: 2025Q2

REPORT INFORMATION
  Report Type: Spontaneous
  Country: TH (occurrence: TH)
  Receive Date: 20250522
  Receipt Date: 20250530
  Transmission Date: 20250716
  Serious: Yes (Other)
  Sender: PFIZER
  Company Number: TH-PFIZER INC-PV202500059842

PATIENT
  Age: 37 Year
  Sex: Female
  Weight: 44.1 kg

DRUGS (1)
  1. MEDROXYPROGESTERONE ACETATE [Suspect]
     Active Substance: MEDROXYPROGESTERONE ACETATE
     Indication: Contraception
     Dosage: UNK, EVERY 3 MONTHS
     Route: 030

REACTIONS (2)
  - Osteoporotic fracture [Recovering/Resolving]
  - Amenorrhoea [Recovered/Resolved]
